FAERS Safety Report 17683515 (Version 2)
Quarter: 2020Q2

REPORT INFORMATION
  Report Type: Spontaneous
  Country: TR (occurrence: TR)
  Receive Date: 20200420
  Receipt Date: 20200428
  Transmission Date: 20200714
  Serious: Yes (Life-Threatening)
  Sender: FDA-Public Use
  Company Number: TR-BAXTER-2020BAX007889

PATIENT
  Age: 38 Year
  Sex: Male

DRUGS (5)
  1. OXYGEN. [Concomitant]
     Active Substance: OXYGEN
     Indication: MEDICATION DILUTION
     Dosage: 50% O2+NO2
     Route: 055
  2. FENTANYL. [Concomitant]
     Active Substance: FENTANYL
     Indication: INDUCTION OF ANAESTHESIA
     Route: 042
  3. PROPOFOL. [Concomitant]
     Active Substance: PROPOFOL
     Indication: INDUCTION OF ANAESTHESIA
     Route: 042
  4. SEVOFLURANE BAXTER INHALASYON ICIN UCUCU COZELTI [Suspect]
     Active Substance: SEVOFLURANE
     Indication: MAINTENANCE OF ANAESTHESIA
     Route: 055
  5. NITROUS OXIDE. [Concomitant]
     Active Substance: NITROUS OXIDE
     Indication: MEDICATION DILUTION
     Dosage: 50% O2+NO2
     Route: 055

REACTIONS (1)
  - Pulmonary alveolar haemorrhage [Recovered/Resolved]
